FAERS Safety Report 9740016 (Version 1)
Quarter: 2013Q4

REPORT INFORMATION
  Report Type: Spontaneous
  Country: US (occurrence: US)
  Receive Date: 20131209
  Receipt Date: 20131209
  Transmission Date: 20140711
  Serious: Yes (Other)
  Sender: FDA-Public Use
  Company Number: US-UCBSA-104704

PATIENT
  Sex: Female

DRUGS (8)
  1. CIMZIA [Suspect]
     Indication: RHEUMATOID ARTHRITIS
     Route: 058
     Dates: start: 2013, end: 2013
  2. PROPRANOLOL [Concomitant]
     Indication: ANXIETY
     Route: 048
  3. PLAQUENIL [Concomitant]
     Indication: RHEUMATOID ARTHRITIS
     Dosage: FROM MANY YEARS
     Route: 048
  4. SERTRALINE [Concomitant]
     Indication: DEPRESSION
     Route: 048
  5. OXYCODONE [Concomitant]
     Indication: PAIN
     Route: 048
  6. VALTREX [Concomitant]
     Indication: ORAL HERPES
     Route: 048
  7. GABAPENTIN [Concomitant]
     Indication: NEURALGIA
     Route: 048
  8. TESSALON PERLES [Concomitant]
     Indication: PRODUCTIVE COUGH

REACTIONS (4)
  - Oral herpes [Unknown]
  - Bronchitis [Recovering/Resolving]
  - Rheumatoid arthritis [Unknown]
  - Sinusitis [Recovered/Resolved]
